FAERS Safety Report 9482450 (Version 2)
Quarter: 2013Q3

REPORT INFORMATION
  Report Type: Spontaneous
  Country: US (occurrence: US)
  Receive Date: 20130828
  Receipt Date: 20130917
  Transmission Date: 20140515
  Serious: Yes (Hospitalization, Other)
  Sender: FDA-Public Use
  Company Number: US-AMGEN-USASP2013059590

PATIENT
  Age: 72 Year
  Sex: Female
  Weight: 55.33 kg

DRUGS (10)
  1. PROLIA [Suspect]
     Indication: OSTEOPOROSIS POSTMENOPAUSAL
     Dosage: 60 MG/ML, Q6MO
     Route: 058
     Dates: start: 20130314, end: 20130314
  2. LORAZEPAM [Concomitant]
     Dosage: 1 MG, QID, AS NECESSARY
     Route: 048
     Dates: start: 20130714
  3. VITAMIN D3 [Concomitant]
     Dosage: 1000 UNIT, 1/2 ORAL, QD
     Route: 048
     Dates: start: 20130314
  4. GABAPENTIN [Concomitant]
     Indication: PAIN
     Dosage: 100 MG, BID
     Route: 048
     Dates: start: 20130207
  5. MUPIROCIN [Concomitant]
     Dosage: 2 %, 1 EXTERNALLY, QD, AS NEEDED
     Dates: start: 20121116
  6. BIOFREEZE                          /00482701/ [Concomitant]
     Dosage: 4 %, 1 EXTERNALLY, TID, AS NEEDED
     Dates: start: 20121116
  7. WARFARIN SODIUM [Concomitant]
     Dosage: 5 MG, QD
     Route: 048
     Dates: start: 20120413
  8. MULTIVITAMINS [Concomitant]
     Dosage: UNK UNK, QD
     Route: 048
     Dates: start: 20120413
  9. B-COMPLEX                          /00003501/ [Concomitant]
     Dosage: UNK UNK, QD
     Route: 048
     Dates: start: 20120413
  10. ADVAIR [Concomitant]
     Dosage: 1 DF, BID
     Dates: start: 20130402

REACTIONS (26)
  - Decreased appetite [Unknown]
  - Insomnia [Unknown]
  - Malaise [Recovering/Resolving]
  - Sensation of heaviness [Recovering/Resolving]
  - Breast cancer female [Unknown]
  - Upper respiratory tract infection [Unknown]
  - Chronic obstructive pulmonary disease [Unknown]
  - Hyperlipidaemia [Unknown]
  - Cardiomyopathy [Unknown]
  - Atrial fibrillation [Unknown]
  - Fibromyalgia [Unknown]
  - Sinus operation [Unknown]
  - Hordeolum [Unknown]
  - Irritable bowel syndrome [Unknown]
  - Heart rate irregular [Unknown]
  - Neuralgia [Unknown]
  - Dizziness [Unknown]
  - Body height decreased [Unknown]
  - Nausea [Unknown]
  - Asthenia [Unknown]
  - Myalgia [Unknown]
  - Anxiety [Unknown]
  - Headache [Unknown]
  - Dyspnoea [Unknown]
  - Back pain [Unknown]
  - Arthralgia [Not Recovered/Not Resolved]
